FAERS Safety Report 5536458-4 (Version None)
Quarter: 2007Q4

REPORT INFORMATION
  Report Type: 
  Country: None (occurrence: None)
  Receive Date: 20071206
  Receipt Date: 20071129
  Transmission Date: 20080405
  Serious: Yes (Life-Threatening, Hospitalization, Disabling, Other)
  Sender: FDA-Public Use
  Company Number: JP-MERCK-0708USA04091

PATIENT
  Age: 85 Year
  Sex: Male
  Weight: 59 kg

DRUGS (6)
  1. HYZAAR [Suspect]
     Indication: HYPERTENSION
     Route: 048
     Dates: start: 20070618, end: 20070804
  2. ADALAT [Suspect]
     Indication: HYPERTENSION
     Route: 048
     Dates: start: 20070613, end: 20070804
  3. MIGLITOL [Concomitant]
     Route: 048
  4. DOXAZOSIN MESYLATE [Suspect]
     Indication: HYPERTENSION
     Route: 048
     Dates: start: 20070604, end: 20070804
  5. PRAVASTATIN SODIUM [Suspect]
     Indication: HYPERLIPIDAEMIA
     Route: 048
     Dates: end: 20070804
  6. ACTOS [Suspect]
     Indication: DIABETES MELLITUS
     Route: 048
     Dates: start: 20070115, end: 20070804

REACTIONS (3)
  - CEREBRAL INFARCTION [None]
  - FAECAL INCONTINENCE [None]
  - NASOPHARYNGITIS [None]
